FAERS Safety Report 10187441 (Version 1)
Quarter: 2014Q2

REPORT INFORMATION
  Report Type: Spontaneous
  Country: US (occurrence: US)
  Receive Date: 20140522
  Receipt Date: 20140522
  Transmission Date: 20141212
  Serious: No
  Sender: FDA-Public Use
  Company Number: US-SANOFI-AVENTIS-2013SA078457

PATIENT
  Age: 76 Year
  Sex: Male
  Weight: 92.98 kg

DRUGS (8)
  1. SOLOSTAR [Suspect]
     Indication: TYPE 2 DIABETES MELLITUS
     Dosage: START DATE -- 5 YEARS
  2. SOLOSTAR [Suspect]
     Indication: TYPE 2 DIABETES MELLITUS
     Dosage: START DATE -- 5 YEARS
  3. LANTUS SOLOSTAR [Suspect]
     Indication: TYPE 2 DIABETES MELLITUS
     Dosage: DOSE:34 UNIT(S)
     Route: 051
  4. LANTUS SOLOSTAR [Suspect]
     Indication: TYPE 2 DIABETES MELLITUS
     Dosage: DOSE:34 UNIT(S)
     Route: 051
  5. SIMVASTATIN [Concomitant]
     Indication: BLOOD CHOLESTEROL
     Route: 065
  6. METOPROLOL [Concomitant]
     Indication: BLOOD PRESSURE
     Route: 065
  7. ASPIRIN [Concomitant]
     Route: 065
  8. CENTRUM SILVER [Concomitant]

REACTIONS (1)
  - Injury associated with device [Unknown]
